FAERS Safety Report 12643985 (Version 1)
Quarter: 2016Q3

REPORT INFORMATION
  Report Type: Spontaneous
  Country: US (occurrence: US)
  Receive Date: 20160811
  Receipt Date: 20160811
  Transmission Date: 20161109
  Serious: No
  Sender: FDA-Public Use
  Company Number: US-DRREDDYS-DRL/USA/16/0079762

PATIENT
  Sex: Male
  Weight: 72.5 kg

DRUGS (1)
  1. ESZOPICLONE. [Suspect]
     Active Substance: ESZOPICLONE
     Indication: INSOMNIA
     Dosage: 1/3 TO 1 TABLET ONCE DAILY
     Route: 048

REACTIONS (1)
  - Wrong technique in product usage process [Unknown]
